FAERS Safety Report 5676030-9 (Version None)
Quarter: 2008Q1

REPORT INFORMATION
  Report Type: 
  Country: None (occurrence: None)
  Receive Date: 20080321
  Receipt Date: 20080317
  Transmission Date: 20080703
  Serious: Yes (Hospitalization, Other)
  Sender: FDA-Public Use
  Company Number: US-ASTRAZENECA-2008AC00706

PATIENT
  Age: 50 Year
  Sex: Female

DRUGS (13)
  1. CANDESARTAN CILEXETIL [Suspect]
  2. CANDESARTAN CILEXETIL [Interacting]
     Dosage: RESTARTED AFTER DISCHARGE
  3. CELECOXIB [Interacting]
     Indication: ARTHRALGIA
  4. METFORMIN HCL [Interacting]
  5. HYDROCHLOROTHIAZIDE [Interacting]
  6. L-THYROXINE [Concomitant]
  7. ACETAMINOPHEN AND CODEINE PHOSPHATE [Concomitant]
  8. ASPIRIN [Concomitant]
  9. SIMVASTATIN [Concomitant]
  10. PREGABALIN [Concomitant]
  11. TIZANIDINE HCL [Concomitant]
  12. ARIPIPRAZOLE [Concomitant]
  13. OMEPRAZOLE [Concomitant]

REACTIONS (6)
  - DRUG INTERACTION [None]
  - DRUG LEVEL INCREASED [None]
  - LACTIC ACIDOSIS [None]
  - PANCREATITIS ACUTE [None]
  - RENAL FAILURE ACUTE [None]
  - RENAL IMPAIRMENT [None]
